FAERS Safety Report 5091954-1 (Version None)
Quarter: 2006Q3

REPORT INFORMATION
  Report Type: 
  Country: None (occurrence: None)
  Receive Date: 20060825
  Receipt Date: 20060814
  Transmission Date: 20061208
  Serious: Yes (Hospitalization)
  Sender: FDA-Public Use
  Company Number: 111989ISR

PATIENT
  Sex: Female

DRUGS (5)
  1. GABAPENTIN [Suspect]
     Dosage: 600 MLLIGRAM, ORAL
     Route: 048
  2. SPIRONOLACTONE [Suspect]
     Dosage: 25 MILLIGRAM, ORAL
     Route: 048
  3. DIGOXIN [Suspect]
     Dosage: 250 MICROGRAM, ORAL
     Route: 048
  4. CETIRIZINE [Concomitant]
  5. FUROSEMIDE [Concomitant]

REACTIONS (4)
  - BLOOD ELECTROLYTES ABNORMAL [None]
  - BLOOD UREA ABNORMAL [None]
  - CONFUSIONAL STATE [None]
  - THERAPEUTIC AGENT TOXICITY [None]
